FAERS Safety Report 14326829 (Version 1)
Quarter: 2017Q4

REPORT INFORMATION
  Report Type: Report from Study
  Country: US (occurrence: US)
  Receive Date: 20171227
  Receipt Date: 20171227
  Transmission Date: 20180321
  Serious: Yes (Hospitalization)
  Sender: FDA-Public Use
  Company Number: US-ROCHE-2041843

PATIENT
  Sex: Female

DRUGS (2)
  1. PERTUZUMAB. [Suspect]
     Active Substance: PERTUZUMAB
     Indication: PLASMA CELL MYELOMA
     Dosage: 22/NOV/2017 MOST RECENT DOSE
     Route: 042
     Dates: start: 20171122
  2. TRASTUZUMAB. [Suspect]
     Active Substance: TRASTUZUMAB
     Indication: PLASMA CELL MYELOMA
     Dosage: ON 22/NOV/2017 MOST RECENT DOSE
     Route: 042
     Dates: start: 20171122

REACTIONS (1)
  - Dehydration [Not Recovered/Not Resolved]

NARRATIVE: CASE EVENT DATE: 20171207
